FAERS Safety Report 8803973 (Version 1)
Quarter: 2012Q4

REPORT INFORMATION
  Report Type: 
  Country: BR (occurrence: BR)
  Receive Date: 20120924
  Receipt Date: 20120924
  Transmission Date: 20130627
  Serious: Yes (Other)
  Sender: FDA-Public Use
  Company Number: PHHY2012BR082442

PATIENT
  Age: 9 Year
  Sex: Male

DRUGS (1)
  1. RITALIN LA [Suspect]
     Dosage: 20 mg, UNK
     Route: 048

REACTIONS (3)
  - Dysphagia [Unknown]
  - Wrong technique in drug usage process [Unknown]
  - Vomiting [Unknown]
